FAERS Safety Report 24869583 (Version 1)
Quarter: 2025Q1

REPORT INFORMATION
  Report Type: Spontaneous
  Country: US (occurrence: US)
  Receive Date: 20250121
  Receipt Date: 20250121
  Transmission Date: 20250408
  Serious: Yes (Death, Hospitalization)
  Sender: PFIZER
  Company Number: US-PFIZER INC-202500012329

PATIENT
  Age: 32 Year
  Sex: Female

DRUGS (10)
  1. FENTANYL CITRATE [Suspect]
     Active Substance: FENTANYL CITRATE
     Route: 048
  2. FENTANYL CITRATE [Suspect]
     Active Substance: FENTANYL CITRATE
     Route: 051
  3. METHAMPHETAMINE HYDROCHLORIDE [Suspect]
     Active Substance: METHAMPHETAMINE HYDROCHLORIDE
     Route: 048
  4. METHAMPHETAMINE HYDROCHLORIDE [Suspect]
     Active Substance: METHAMPHETAMINE HYDROCHLORIDE
     Route: 051
  5. AMPHETAMINE [Suspect]
     Active Substance: AMPHETAMINE
     Route: 048
  6. AMPHETAMINE [Suspect]
     Active Substance: AMPHETAMINE
     Route: 051
  7. COCAINE [Suspect]
     Active Substance: COCAINE
     Route: 048
  8. COCAINE [Suspect]
     Active Substance: COCAINE
     Route: 051
  9. GABAPENTIN [Suspect]
     Active Substance: GABAPENTIN
     Route: 048
  10. GABAPENTIN [Suspect]
     Active Substance: GABAPENTIN
     Route: 051

REACTIONS (2)
  - Cardiac arrest [Fatal]
  - Respiratory arrest [Fatal]

NARRATIVE: CASE EVENT DATE: 20230101
